FAERS Safety Report 11468117 (Version 3)
Quarter: 2015Q4

REPORT INFORMATION
  Report Type: Spontaneous
  Country: JP (occurrence: JP)
  Receive Date: 20150908
  Receipt Date: 20151022
  Transmission Date: 20160304
  Serious: Yes (Life-Threatening)
  Sender: FDA-Public Use
  Company Number: JP-ASTRAZENECA-2015SE86444

PATIENT
  Age: 19706 Day
  Sex: Male
  Weight: 68 kg

DRUGS (6)
  1. SYMBICORT [Suspect]
     Active Substance: BUDESONIDE\FORMOTEROL FUMARATE DIHYDRATE
     Indication: ASTHMA
     Dosage: 4 DOSAGE FORM, TWO TIMES A DAY
     Route: 055
  2. SYMBICORT [Suspect]
     Active Substance: BUDESONIDE\FORMOTEROL FUMARATE DIHYDRATE
     Indication: ASTHMA
     Dosage: REMAINING POWDER STUCK TO HIS HANDS AND HE INHALED ALMOST ALL OF IT
     Route: 055
     Dates: start: 20150829
  3. AIMIX [Concomitant]
     Active Substance: AMLODIPINE BESYLATE\IRBESARTAN
     Indication: HYPERTENSION
     Dosage: DOSE UNKNOWN, EVERY DAY
     Route: 048
  4. CARBOCISTEINE [Concomitant]
     Active Substance: CARBOCYSTEINE
     Indication: ASTHMA
     Route: 048
  5. MEPTIN AIR [Concomitant]
     Active Substance: PROCATEROL HYDROCHLORIDE
     Indication: ASTHMA
     Dosage: AS REQUIRED AS RELIEVER THERAPY
     Route: 055
  6. PRANLUKAST [Concomitant]
     Active Substance: PRANLUKAST
     Indication: ASTHMA
     Route: 048

REACTIONS (4)
  - Overdose [Unknown]
  - Acute myocardial infarction [Recovered/Resolved]
  - Tachycardia [Unknown]
  - Intentional device misuse [Unknown]

NARRATIVE: CASE EVENT DATE: 20150829
